FAERS Safety Report 7044650-5 (Version None)
Quarter: 2010Q4

REPORT INFORMATION
  Report Type: 
  Country: None (occurrence: None)
  Receive Date: 20101014
  Receipt Date: 20101008
  Transmission Date: 20110411
  Serious: Yes (Death)
  Sender: FDA-Public Use
  Company Number: US-MYLANLABS-2010S1013498

PATIENT
  Sex: Male

DRUGS (1)
  1. FENTANYL-100 [Suspect]
     Indication: PAIN
     Dosage: CHANGED PATCHES EVERY 72 HOURS
     Route: 062
     Dates: start: 20080714, end: 20080716

REACTIONS (2)
  - NARCOTIC INTOXICATION [None]
  - OVERDOSE [None]
